FAERS Safety Report 12351058 (Version 2)
Quarter: 2016Q2

REPORT INFORMATION
  Report Type: Report from Study
  Country: RO (occurrence: RO)
  Receive Date: 20160510
  Receipt Date: 20160527
  Transmission Date: 20160815
  Serious: Yes (Hospitalization)
  Sender: FDA-Public Use
  Company Number: RO-ABBVIE-16P-135-1622702-00

PATIENT
  Age: 69 Year
  Sex: Female

DRUGS (15)
  1. EXVIERA [Suspect]
     Active Substance: DASABUVIR
     Indication: HEPATITIS C
     Dosage: 1-0-1
     Route: 048
     Dates: start: 20160217, end: 20160510
  2. ATACAND [Concomitant]
     Active Substance: CANDESARTAN CILEXETIL
     Indication: HYPERTENSION
     Route: 048
     Dates: start: 20160217
  3. DIUREX [Concomitant]
     Active Substance: AMILORIDE HYDROCHLORIDE\HYDROCHLOROTHIAZIDE
     Indication: PRODUCT USED FOR UNKNOWN INDICATION
     Route: 048
  4. DIAPREL [Concomitant]
     Active Substance: GLICLAZIDE
     Indication: DIABETES MELLITUS
     Route: 048
     Dates: start: 200801
  5. FUROSEMID [Concomitant]
     Active Substance: FUROSEMIDE
     Indication: PRODUCT USED FOR UNKNOWN INDICATION
     Dates: end: 20160501
  6. ATACAND [Concomitant]
     Active Substance: CANDESARTAN CILEXETIL
  7. DIAPREL [Concomitant]
     Active Substance: GLICLAZIDE
     Indication: PRODUCT USED FOR UNKNOWN INDICATION
     Dosage: 1-0-0.5
  8. URSOFALK [Concomitant]
     Active Substance: URSODIOL
     Indication: PRODUCT USED FOR UNKNOWN INDICATION
  9. VIEKIRAX [Suspect]
     Active Substance: OMBITASVIR\PARITAPREVIR\RITONAVIR
     Indication: HEPATITIS C
     Dosage: 2-0-0
     Route: 048
     Dates: start: 20160217, end: 20160510
  10. EXVIERA [Suspect]
     Active Substance: DASABUVIR
     Indication: HEPATIC CIRRHOSIS
  11. MODERIBA [Suspect]
     Active Substance: RIBAVIRIN
     Indication: HEPATITIS C
     Dosage: 3-0-3
     Route: 048
     Dates: start: 20160217
  12. DIUREX [Concomitant]
     Active Substance: AMILORIDE HYDROCHLORIDE\HYDROCHLOROTHIAZIDE
     Indication: HYPERTENSION
     Route: 048
     Dates: start: 20160417
  13. VIEKIRAX [Suspect]
     Active Substance: OMBITASVIR\PARITAPREVIR\RITONAVIR
     Indication: HEPATIC CIRRHOSIS
  14. MODERIBA [Suspect]
     Active Substance: RIBAVIRIN
     Indication: HEPATIC CIRRHOSIS
     Dosage: 2-0-3
     Route: 048
     Dates: start: 20160417
  15. ATACAND [Concomitant]
     Active Substance: CANDESARTAN CILEXETIL
     Dosage: 0.5 IN 1 DAY

REACTIONS (17)
  - Bone pain [Not Recovered/Not Resolved]
  - Hepatic failure [Recovering/Resolving]
  - Asthenia [Not Recovered/Not Resolved]
  - Epistaxis [Recovering/Resolving]
  - Asthenia [Not Recovered/Not Resolved]
  - Haemoglobin decreased [Recovering/Resolving]
  - Calcium deficiency [Unknown]
  - Emotional disorder [Not Recovered/Not Resolved]
  - Vomiting [Recovering/Resolving]
  - Drug ineffective [Unknown]
  - Respiratory failure [Not Recovered/Not Resolved]
  - Amnesia [Not Recovered/Not Resolved]
  - Labile hypertension [Unknown]
  - Blood pressure increased [Recovered/Resolved]
  - Dizziness [Not Recovered/Not Resolved]
  - Burn oesophageal [Recovering/Resolving]
  - Fatigue [Unknown]

NARRATIVE: CASE EVENT DATE: 20160217
